FAERS Safety Report 8760113 (Version 1)
Quarter: 2012Q4

REPORT INFORMATION
  Report Type: Spontaneous
  Country: US (occurrence: None)
  Receive Date: 20120829
  Receipt Date: 20120829
  Transmission Date: 20130627
  Serious: Yes (Disabling, Other)
  Sender: FDA-Public Use
  Company Number: None

PATIENT
  Sex: Female
  Weight: 104.33 kg

DRUGS (3)
  1. ZOCOR [Suspect]
     Dosage: 1 EVERY DAY
     Dates: start: 201001
  2. LESCOL [Suspect]
     Indication: BLOOD CHOLESTEROL INCREASED
     Dosage: 1 never took because of Zocor
  3. IPROFEN [Concomitant]

REACTIONS (2)
  - Abasia [None]
  - Pain [None]
